FAERS Safety Report 15034120 (Version 1)
Quarter: 2018Q2

REPORT INFORMATION
  Report Type: Spontaneous
  Country: US (occurrence: US)
  Receive Date: 20180620
  Receipt Date: 20180620
  Transmission Date: 20180711
  Serious: No
  Sender: FDA-Public Use
  Company Number: US-TEVA-797919ACC

PATIENT
  Sex: Female

DRUGS (1)
  1. LIDOCAINE. [Suspect]
     Active Substance: LIDOCAINE
     Indication: MUSCLE RUPTURE
     Dosage: TOPICAL PATCH
     Dates: start: 20170809

REACTIONS (1)
  - Blood blister [Unknown]

NARRATIVE: CASE EVENT DATE: 20170810
